FAERS Safety Report 5232348-5 (Version None)
Quarter: 2007Q1

REPORT INFORMATION
  Report Type: 
  Country: None (occurrence: None)
  Receive Date: 20070207
  Receipt Date: 20070125
  Transmission Date: 20070707
  Serious: Yes (Hospitalization)
  Sender: FDA-Public Use
  Company Number: FR-JNJFOC-20070107682

PATIENT
  Age: 85 Year
  Sex: Female

DRUGS (3)
  1. CONTRAMAL [Suspect]
     Indication: ARTHRALGIA
     Route: 048
  2. LAMALINE [Concomitant]
     Indication: ARTHRALGIA
     Route: 065
  3. PREGABALIN [Concomitant]
     Indication: NEURALGIA
     Route: 065

REACTIONS (3)
  - GAIT DISTURBANCE [None]
  - HYPONATRAEMIA [None]
  - VERTIGO [None]
